FAERS Safety Report 18269503 (Version 1)
Quarter: 2020Q3

REPORT INFORMATION
  Report Type: Spontaneous
  Country: US (occurrence: US)
  Receive Date: 20200915
  Receipt Date: 20200915
  Transmission Date: 20201103
  Serious: Yes (Other)
  Sender: FDA-Public Use
  Company Number: US-AUROBINDO-AUR-APL-2013-03216

PATIENT
  Age: 50 Year
  Sex: Female

DRUGS (5)
  1. BUPROPION. [Suspect]
     Active Substance: BUPROPION
     Indication: LOSS OF LIBIDO
  2. PAROXETINE. [Suspect]
     Active Substance: PAROXETINE
     Dosage: 5 MILLIGRAM (A SECOND DOSE)
     Route: 065
  3. BUPROPION. [Suspect]
     Active Substance: BUPROPION
     Indication: FATIGUE
     Dosage: UNK UNK,UNK,
     Route: 065
  4. LORAZEPAM. [Suspect]
     Active Substance: LORAZEPAM
     Indication: POST-TRAUMATIC STRESS DISORDER
     Dosage: UNK
     Route: 065
  5. PAROXETINE. [Suspect]
     Active Substance: PAROXETINE
     Indication: POST-TRAUMATIC STRESS DISORDER
     Dosage: UNK
     Route: 065

REACTIONS (13)
  - Tachycardia [Recovered/Resolved]
  - Depression [Recovered/Resolved]
  - Drug abuse [Recovered/Resolved]
  - Suicidal ideation [Recovered/Resolved]
  - Constipation [Recovered/Resolved]
  - Homicidal ideation [Recovered/Resolved]
  - Mood altered [Recovered/Resolved]
  - Loss of libido [Recovered/Resolved]
  - Asthenia [Recovered/Resolved]
  - Weight increased [Recovered/Resolved]
  - Agitation [Recovered/Resolved]
  - Insomnia [Recovered/Resolved]
  - Withdrawal syndrome [Recovered/Resolved]
